FAERS Safety Report 7383362-5 (Version None)
Quarter: 2011Q1

REPORT INFORMATION
  Report Type: 
  Country: None (occurrence: None)
  Receive Date: 20110330
  Receipt Date: 20110316
  Transmission Date: 20110831
  Serious: Yes (Hospitalization)
  Sender: FDA-Public Use
  Company Number: US-JNJFOC-20110308223

PATIENT
  Sex: Female
  Weight: 52.3 kg

DRUGS (8)
  1. INFLIXIMAB, RECOMBINANT [Suspect]
     Route: 042
  2. PROTONIX [Concomitant]
  3. INFLIXIMAB, RECOMBINANT [Suspect]
     Route: 042
  4. INFLIXIMAB, RECOMBINANT [Suspect]
     Indication: CROHN'S DISEASE
     Route: 042
  5. LEXAPRO [Concomitant]
  6. INFLIXIMAB, RECOMBINANT [Suspect]
     Route: 042
  7. LEVSIN [Concomitant]
  8. BUDESONIDE [Concomitant]

REACTIONS (1)
  - CROHN'S DISEASE [None]
